FAERS Safety Report 18551054 (Version 4)
Quarter: 2024Q2

REPORT INFORMATION
  Report Type: Report from Study
  Country: CA (occurrence: CA)
  Receive Date: 20201126
  Receipt Date: 20240510
  Transmission Date: 20240716
  Serious: Yes (Hospitalization)
  Sender: FDA-Public Use
  Company Number: PHHY2019CA215286

PATIENT
  Age: 53 Year
  Sex: Male

DRUGS (2)
  1. ILARIS [Suspect]
     Active Substance: CANAKINUMAB
     Indication: Muckle-Wells syndrome
     Dosage: 150 MG (EVERY 8 WEEKS)
     Route: 058
     Dates: start: 20161122
  2. ILARIS [Suspect]
     Active Substance: CANAKINUMAB
     Dosage: 150 MG, EVERY 8 WEEKS
     Route: 058
     Dates: start: 20190826

REACTIONS (5)
  - Infection [Unknown]
  - Hypoacusis [Unknown]
  - Pain in extremity [Unknown]
  - Peripheral swelling [Unknown]
  - Malaise [Unknown]
